FAERS Safety Report 9908054 (Version 1)
Quarter: 2014Q1

REPORT INFORMATION
  Report Type: Spontaneous
  Country: US (occurrence: None)
  Receive Date: 20140212
  Receipt Date: 20140212
  Transmission Date: 20141002
  Serious: No
  Sender: FDA-Public Use
  Company Number: None

PATIENT
  Age: 36 Year
  Sex: Male
  Weight: 81.65 kg

DRUGS (1)
  1. LISINOPRIL, 5 MG [Suspect]
     Indication: BLOOD PRESSURE
     Dosage: TAKEN BY MOUTH

REACTIONS (1)
  - Chest pain [None]
